FAERS Safety Report 18126227 (Version 1)
Quarter: 2020Q3

REPORT INFORMATION
  Report Type: Spontaneous
  Country: US (occurrence: US)
  Receive Date: 20200808
  Receipt Date: 20200808
  Transmission Date: 20201103
  Serious: No
  Sender: FDA-Public Use
  Company Number: US-009507513-2007USA009281

PATIENT
  Age: 20 Year
  Sex: Female

DRUGS (2)
  1. STERILE DILUENT (WATER) [Suspect]
     Active Substance: WATER
     Dosage: UNK
  2. PROQUAD [Suspect]
     Active Substance: MEASLES VIRUS STRAIN ENDERS^ ATTENUATED EDMONSTON LIVE ANTIGEN\MUMPS VIRUS STRAIN B LEVEL JERYL LYNN LIVE ANTIGEN\RUBELLA VIRUS STRAIN WISTAR RA 27/3 LIVE ANTIGEN\VARICELLA-ZOSTER VIRUS STRAIN OKA/MERCK LIVE ANTIGEN
     Indication: PROPHYLAXIS
     Route: 058

REACTIONS (6)
  - Rubella antibody negative [Not Recovered/Not Resolved]
  - Wrong product administered [Unknown]
  - Antibody test negative [Not Recovered/Not Resolved]
  - Measles antibody negative [Not Recovered/Not Resolved]
  - Product administered to patient of inappropriate age [Unknown]
  - Mumps antibody test negative [Not Recovered/Not Resolved]

NARRATIVE: CASE EVENT DATE: 20200717
